FAERS Safety Report 9919961 (Version 3)
Quarter: 2014Q2

REPORT INFORMATION
  Report Type: Spontaneous
  Country: US (occurrence: US)
  Receive Date: 20140224
  Receipt Date: 20140516
  Transmission Date: 20141212
  Serious: Yes (Death, Other)
  Sender: FDA-Public Use
  Company Number: US-CELGENEUS-163-21880-14023037

PATIENT
  Age: 66 Year
  Sex: Male

DRUGS (14)
  1. REVLIMID [Suspect]
     Indication: PLASMA CELL MYELOMA
     Dosage: 5 MILLIGRAM
     Route: 048
     Dates: start: 20110328, end: 20110719
  2. REVLIMID [Suspect]
     Dosage: 5 MILLIGRAM
     Route: 048
     Dates: start: 20111209, end: 20120130
  3. REVLIMID [Suspect]
     Dosage: 5 MILLIGRAM
     Route: 048
     Dates: start: 20120320, end: 201205
  4. REVLIMID [Suspect]
     Dosage: 5 MILLIGRAM
     Route: 048
     Dates: start: 20120726, end: 20130412
  5. REVLIMID [Suspect]
     Dosage: 5 MILLIGRAM
     Route: 048
     Dates: start: 201307, end: 20131201
  6. RENAGEL [Concomitant]
     Indication: BLOOD PHOSPHORUS INCREASED
     Dosage: 2400 MILLIGRAM
     Route: 048
     Dates: start: 2009
  7. MIDODRINE [Concomitant]
     Indication: ORTHOSTATIC HYPERTENSION
     Route: 065
     Dates: start: 2009
  8. FOLIC ACID [Concomitant]
     Indication: ANAEMIA
     Route: 065
  9. VITAMIN C [Concomitant]
     Indication: SUPPLEMENTATION THERAPY
     Route: 065
  10. ASPIRIN [Concomitant]
     Indication: PROPHYLAXIS
     Dosage: 81 MILLIGRAM
     Route: 065
     Dates: start: 20110315
  11. ZEMPLAR [Concomitant]
     Indication: PRODUCT USED FOR UNKNOWN INDICATION
     Dosage: 4 MILLIGRAM
     Route: 041
     Dates: start: 20100505
  12. EPOGEN [Concomitant]
     Indication: PRODUCT USED FOR UNKNOWN INDICATION
     Dosage: 2200 U
     Route: 065
     Dates: start: 20100505
  13. VENOFER [Concomitant]
     Indication: PRODUCT USED FOR UNKNOWN INDICATION
     Dosage: 100 MILLIGRAM
     Route: 041
     Dates: start: 20100505
  14. RENAL CAPS [Concomitant]
     Indication: RENAL FAILURE CHRONIC
     Route: 065

REACTIONS (5)
  - Acute myeloid leukaemia [Fatal]
  - Plasma cell myeloma [Fatal]
  - Anaemia [Recovered/Resolved]
  - Thrombocytopenia [Recovered/Resolved]
  - Neutropenia [Recovered/Resolved]
